FAERS Safety Report 8901306 (Version 1)
Quarter: 2012Q4

REPORT INFORMATION
  Report Type: 
  Country: US (occurrence: US)
  Receive Date: 20121109
  Receipt Date: 20121109
  Transmission Date: 20130627
  Serious: No
  Sender: FDA-Public Use
  Company Number: US-PFIZER INC-2012278035

PATIENT
  Age: 47 Year
  Sex: Female

DRUGS (4)
  1. PRISTIQ [Suspect]
     Dosage: UNK
     Dates: end: 201202
  2. SEROQUEL [Suspect]
     Indication: BIPOLAR DISORDER
     Dosage: 300 mg, UNK
     Route: 048
     Dates: start: 2007, end: 2012
  3. TOPAMAX [Concomitant]
     Indication: MIGRAINE
     Dosage: 100 mg, UNK
  4. TRAZODONE [Concomitant]
     Indication: SLEEP PROBLEM
     Dosage: 100 mg, UNK

REACTIONS (4)
  - Intervertebral disc protrusion [Unknown]
  - Alopecia [Unknown]
  - Food craving [Unknown]
  - Menorrhagia [Unknown]
